FAERS Safety Report 12592762 (Version 1)
Quarter: 2016Q3

REPORT INFORMATION
  Report Type: Report from Study
  Country: JP (occurrence: JP)
  Receive Date: 20160726
  Receipt Date: 20160726
  Transmission Date: 20161109
  Serious: Yes (Death, Hospitalization)
  Sender: FDA-Public Use
  Company Number: JP-JNJFOC-20160325026

PATIENT
  Age: 42 Year
  Sex: Male
  Weight: 60 kg

DRUGS (38)
  1. KREMEZIN [Concomitant]
     Active Substance: ACTIVATED CHARCOAL
     Indication: RENAL IMPAIRMENT
     Route: 048
     Dates: start: 20160112, end: 20160208
  2. PREDNISONE. [Concomitant]
     Active Substance: PREDNISONE
     Indication: BEHCET^S SYNDROME
     Route: 048
     Dates: start: 20151030, end: 20151105
  3. METHOTREXATE. [Concomitant]
     Active Substance: METHOTREXATE
     Route: 048
     Dates: start: 20150527, end: 20150618
  4. REMICADE [Suspect]
     Active Substance: INFLIXIMAB
     Indication: BEHCET^S SYNDROME
     Route: 042
     Dates: start: 20150928
  5. REMICADE [Suspect]
     Active Substance: INFLIXIMAB
     Indication: BEHCET^S SYNDROME
     Dosage: 10 MG/KG
     Route: 042
     Dates: start: 20160201
  6. LASIX [Concomitant]
     Active Substance: FUROSEMIDE
     Indication: HYPOALBUMINAEMIA
     Route: 042
     Dates: start: 20160120, end: 20160122
  7. THYRADIN S [Concomitant]
     Active Substance: LEVOTHYROXINE SODIUM
     Indication: HYPOTHYROIDISM
     Dosage: DRUG WAS STARTED BEFORE THE START OF INFLIXIMAB
     Route: 048
     Dates: start: 20160208
  8. BIOFERMIN R [Concomitant]
     Active Substance: BACILLUS SUBTILIS\LACTOBACILLUS ACIDOPHILUS\STREPTOCOCCUS FAECAIS
     Indication: GASTROINTESTINAL DISORDER
     Dosage: DRUG WAS STARTED BEFORE THE START OF INFLIXIMAB
     Route: 048
     Dates: start: 20160208
  9. BAKTAR [Concomitant]
     Active Substance: SULFAMETHOXAZOLE\TRIMETHOPRIM
     Indication: PROPHYLAXIS
     Dosage: DRUG WAS STARTED BEFORE THE START OF INFLIXIMAB
     Route: 048
     Dates: end: 20160122
  10. PREDNISONE. [Concomitant]
     Active Substance: PREDNISONE
     Indication: BEHCET^S SYNDROME
     Route: 048
     Dates: start: 20151231, end: 20160208
  11. PREDNISOLONE. [Concomitant]
     Active Substance: PREDNISOLONE
     Indication: BEHCET^S SYNDROME
     Route: 048
     Dates: start: 20151030, end: 20151105
  12. HYDROCORTISONE. [Concomitant]
     Active Substance: HYDROCORTISONE
     Indication: HYPOPITUITARISM
     Dosage: DRUG WAS STARTED BEFORE THE START OF INFLIXIMAB
     Route: 048
  13. INSULIN [Concomitant]
     Active Substance: INSULIN NOS
     Route: 058
     Dates: start: 20150218
  14. SEISHOKU [Concomitant]
     Active Substance: SODIUM CHLORIDE
     Route: 051
     Dates: start: 20150218
  15. LIXIANA [Concomitant]
     Active Substance: EDOXABAN TOSILATE MONOHYDRATE
     Indication: BEHCET^S SYNDROME
     Dosage: DRUG WAS STARTED BEFORE THE START OF INFLIXIMAB
     Route: 048
     Dates: end: 20160202
  16. PREDNISONE. [Concomitant]
     Active Substance: PREDNISONE
     Indication: BEHCET^S SYNDROME
     Route: 048
     Dates: start: 20151023, end: 20151029
  17. PHENYTOIN. [Concomitant]
     Active Substance: PHENYTOIN
     Route: 065
     Dates: start: 20150218
  18. PREDNISOLONE. [Concomitant]
     Active Substance: PREDNISOLONE
     Indication: BEHCET^S SYNDROME
     Route: 048
     Dates: start: 20151106, end: 20151210
  19. PREDNISOLONE. [Concomitant]
     Active Substance: PREDNISOLONE
     Indication: BEHCET^S SYNDROME
     Route: 048
     Dates: start: 20151023, end: 20151029
  20. REMICADE [Suspect]
     Active Substance: INFLIXIMAB
     Indication: BEHCET^S SYNDROME
     Route: 042
     Dates: start: 20151013
  21. GLUCONSAN K [Concomitant]
     Indication: HYPOKALAEMIA
     Dosage: DRUG WAS STARTED BEFORE THE START OF INFLIXIMAB
     Route: 048
     Dates: start: 20160208
  22. PREDNISOLONE. [Concomitant]
     Active Substance: PREDNISOLONE
     Indication: BEHCET^S SYNDROME
     Route: 048
     Dates: start: 20151231, end: 20160208
  23. PREDNISOLONE. [Concomitant]
     Active Substance: PREDNISOLONE
     Indication: BEHCET^S SYNDROME
     Route: 048
     Dates: start: 20151211, end: 20151230
  24. RISUMIC [Concomitant]
     Active Substance: AMEZINIUM METILSULFATE
     Indication: HYPOTENSION
     Route: 048
     Dates: start: 20160109
  25. EPOETIN ALFA [Concomitant]
     Active Substance: ERYTHROPOIETIN
     Indication: NEPHROGENIC ANAEMIA
     Route: 058
     Dates: start: 20160120, end: 20160122
  26. COLCHICINE. [Concomitant]
     Active Substance: COLCHICINE
     Indication: BEHCET^S SYNDROME
     Dosage: DRUG WAS STARTED BEFORE THE START OF INFLIXIMAB
     Route: 048
     Dates: end: 20160208
  27. NEXIUM [Concomitant]
     Active Substance: ESOMEPRAZOLE MAGNESIUM
     Indication: GASTRIC ULCER
     Dosage: DRUG WAS STARTED BEFORE THE START OF INFLIXIMAB
     Route: 048
     Dates: end: 20160119
  28. GLUCOSE [Concomitant]
     Active Substance: DEXTROSE
     Route: 065
  29. PREDNISOLONE. [Concomitant]
     Active Substance: PREDNISOLONE
     Indication: BEHCET^S SYNDROME
     Route: 048
     Dates: start: 20151022
  30. HYDROCORTISONE. [Concomitant]
     Active Substance: HYDROCORTISONE
     Indication: HYPOPITUITARISM
     Route: 048
     Dates: start: 20160208
  31. VONOPRAZAN [Concomitant]
     Active Substance: VONOPRAZAN
     Indication: GASTRIC ULCER
     Route: 048
     Dates: start: 20160120, end: 20160208
  32. DOPAMINE HYDROCHLORIDE. [Concomitant]
     Active Substance: DOPAMINE HYDROCHLORIDE
     Indication: HYPOTENSION
     Route: 041
     Dates: start: 20160120, end: 20160122
  33. LASIX [Concomitant]
     Active Substance: FUROSEMIDE
     Indication: HYPOALBUMINAEMIA
     Route: 048
     Dates: start: 20160127, end: 20160208
  34. PREDNISONE. [Concomitant]
     Active Substance: PREDNISONE
     Indication: BEHCET^S SYNDROME
     Route: 048
     Dates: end: 20151022
  35. PREDNISONE. [Concomitant]
     Active Substance: PREDNISONE
     Indication: BEHCET^S SYNDROME
     Route: 048
     Dates: start: 20151106, end: 20151210
  36. REMICADE [Suspect]
     Active Substance: INFLIXIMAB
     Indication: BEHCET^S SYNDROME
     Route: 042
     Dates: start: 20151109
  37. HYDROCORTISONE. [Concomitant]
     Active Substance: HYDROCORTISONE
     Indication: HYPOPITUITARISM
     Route: 048
     Dates: start: 20150212
  38. PREDNISONE. [Concomitant]
     Active Substance: PREDNISONE
     Indication: BEHCET^S SYNDROME
     Route: 048
     Dates: start: 20151211, end: 20151230

REACTIONS (2)
  - Infection [Fatal]
  - Nephrogenic anaemia [Not Recovered/Not Resolved]

NARRATIVE: CASE EVENT DATE: 20160108
